FAERS Safety Report 6678220-5 (Version None)
Quarter: 2010Q2

REPORT INFORMATION
  Report Type: 
  Country: None (occurrence: None)
  Receive Date: 20100408
  Receipt Date: 20100408
  Transmission Date: 20101027
  Serious: No
  Sender: FDA-Public Use
  Company Number: None

PATIENT
  Age: 40 Year
  Sex: Female
  Weight: 63.5036 kg

DRUGS (1)
  1. TAXOTERE [Suspect]
     Indication: BREAST CANCER
     Dosage: 4 DOSES 3 WEEKS IV DRIP
     Route: 041
     Dates: start: 20041101, end: 20050106

REACTIONS (1)
  - ANDROGENETIC ALOPECIA [None]
